FAERS Safety Report 25925377 (Version 1)
Quarter: 2025Q4

REPORT INFORMATION
  Report Type: Spontaneous
  Country: US (occurrence: None)
  Receive Date: 20251013
  Receipt Date: 20251013
  Transmission Date: 20260117
  Serious: No
  Sender: FDA-CTU
  Company Number: None

PATIENT

DRUGS (1)
  1. VENLAFAXINE [Suspect]
     Active Substance: VENLAFAXINE HYDROCHLORIDE

REACTIONS (7)
  - Hot flush [None]
  - Drug ineffective [None]
  - Drug intolerance [None]
  - Nausea [None]
  - Decreased appetite [None]
  - Middle insomnia [None]
  - Retching [None]
